FAERS Safety Report 25095236 (Version 1)
Quarter: 2025Q1

REPORT INFORMATION
  Report Type: Spontaneous
  Country: US (occurrence: US)
  Receive Date: 20250319
  Receipt Date: 20250319
  Transmission Date: 20250409
  Serious: No
  Sender: GALDERMA
  Company Number: US-GALDERMA-US2024017422

PATIENT

DRUGS (5)
  1. PROACTIV MD ADAPALENE ACNE TREATMENT [Suspect]
     Active Substance: ADAPALENE
     Indication: Acne
     Dosage: 1 DOSAGE FORM, TIW
     Route: 061
     Dates: start: 202302, end: 202304
  2. Proactiv MD Ultra Gentle Cleanser [Concomitant]
     Indication: Acne
     Route: 061
     Dates: start: 202302, end: 202304
  3. COSMETICS [Concomitant]
     Active Substance: COSMETICS
     Indication: Acne
     Route: 061
     Dates: start: 202302, end: 202304
  4. COSMETICS [Concomitant]
     Active Substance: COSMETICS
     Indication: Acne
     Route: 061
     Dates: start: 202302, end: 202304
  5. COSMETICS [Concomitant]
     Active Substance: COSMETICS
     Indication: Acne
     Route: 061
     Dates: start: 202302, end: 202304

REACTIONS (7)
  - Hypersensitivity [Recovering/Resolving]
  - Acne [Recovering/Resolving]
  - Pruritus [Recovered/Resolved]
  - Erythema [Recovered/Resolved]
  - Drug ineffective [Unknown]
  - Inappropriate schedule of product administration [Recovered/Resolved]
  - Underdose [Recovered/Resolved]

NARRATIVE: CASE EVENT DATE: 20230101
